FAERS Safety Report 24340857 (Version 4)
Quarter: 2025Q3

REPORT INFORMATION
  Report Type: Report from Study
  Country: US (occurrence: US)
  Receive Date: 20240919
  Receipt Date: 20250926
  Transmission Date: 20251020
  Serious: No
  Sender: SUNOVION
  Company Number: US-SUMITOMO PHARMA SWITZERLAND GMBH-2024SPA002473

PATIENT
  Age: 69 Year
  Sex: Male

DRUGS (43)
  1. ORGOVYX [Suspect]
     Active Substance: RELUGOLIX
     Indication: Prostate cancer
     Dosage: 360 MG, SINGLE
     Route: 048
     Dates: start: 20230910, end: 20230910
  2. ORGOVYX [Suspect]
     Active Substance: RELUGOLIX
     Dosage: 120 MG, QD
     Route: 048
     Dates: start: 20230911
  3. NUBEQA [Concomitant]
     Active Substance: DAROLUTAMIDE
  4. Anamu [Concomitant]
  5. ASPIRIN [Concomitant]
     Active Substance: ASPIRIN
  6. ATENOLOL [Concomitant]
     Active Substance: ATENOLOL
  7. Berberine complex [Concomitant]
  8. COLCHICINE [Concomitant]
     Active Substance: COLCHICINE
  9. COLCRYS [Concomitant]
     Active Substance: COLCHICINE
  10. DOXYCYCLINE HYCLATE [Concomitant]
     Active Substance: DOXYCYCLINE HYCLATE
  11. EPIPEN [Concomitant]
     Active Substance: EPINEPHRINE
  12. GABAPENTIN [Concomitant]
     Active Substance: GABAPENTIN
  13. GLIPIZIDE [Concomitant]
     Active Substance: GLIPIZIDE
  14. CHONDROITIN SULFATE (BOVINE)\GLUCOSAMINE HYDROCHLORIDE [Concomitant]
     Active Substance: CHONDROITIN SULFATE (BOVINE)\GLUCOSAMINE HYDROCHLORIDE
  15. HUMALOG KWIKPEN [Concomitant]
     Active Substance: INSULIN LISPRO
  16. JARDIANCE [Concomitant]
     Active Substance: EMPAGLIFLOZIN
  17. LANTUS [Concomitant]
     Active Substance: INSULIN GLARGINE
  18. LIDOCAINE [Concomitant]
     Active Substance: LIDOCAINE
  19. LIPITOR [Concomitant]
     Active Substance: ATORVASTATIN CALCIUM
  20. LYNPARZA [Concomitant]
     Active Substance: OLAPARIB
  21. MEBENDAZOLE [Concomitant]
     Active Substance: MEBENDAZOLE
  22. MELATONIN [Concomitant]
     Active Substance: MELATONIN
  23. METFORMIN [Concomitant]
     Active Substance: METFORMIN HYDROCHLORIDE
  24. Methyl Protect [Concomitant]
  25. Moringa [Concomitant]
  26. MUPIROCIN [Concomitant]
     Active Substance: MUPIROCIN
  27. NORVASC [Concomitant]
     Active Substance: AMLODIPINE BESYLATE
  28. NOVOLOG [Concomitant]
     Active Substance: INSULIN ASPART
  29. FISH OIL\OMEGA-3 FATTY ACIDS [Concomitant]
     Active Substance: FISH OIL\OMEGA-3 FATTY ACIDS
  30. PEPCID [Concomitant]
     Active Substance: FAMOTIDINE
  31. PLAVIX [Concomitant]
     Active Substance: CLOPIDOGREL BISULFATE
  32. PLUVICTO [Concomitant]
     Active Substance: LUTETIUM LU-177 VIPIVOTIDE TETRAXETAN
  33. PREDNISONE [Concomitant]
     Active Substance: PREDNISONE
  34. PROCHLORPERAZINE [Concomitant]
     Active Substance: PROCHLORPERAZINE
  35. HERBALS\TURMERIC [Concomitant]
     Active Substance: HERBALS\TURMERIC
  36. Olive leaf [Concomitant]
  37. Soursop graviola gummies [Concomitant]
  38. SPIRONOLACTONE [Concomitant]
     Active Substance: SPIRONOLACTONE
  39. TRAMADOL [Concomitant]
     Active Substance: TRAMADOL
  40. Turmeric Xtra [Concomitant]
  41. TYLENOL [Concomitant]
     Active Substance: ACETAMINOPHEN
  42. VALSARTAN AND HYDROCHLOROTHIAZIDE [Concomitant]
     Active Substance: HYDROCHLOROTHIAZIDE\VALSARTAN
  43. MENAQUINONE 6 [Concomitant]
     Active Substance: MENAQUINONE 6

REACTIONS (3)
  - Prostatic specific antigen increased [Unknown]
  - Arthralgia [Unknown]
  - Fatigue [Unknown]
